FAERS Safety Report 25616444 (Version 1)
Quarter: 2025Q3

REPORT INFORMATION
  Report Type: Spontaneous
  Country: US (occurrence: US)
  Receive Date: 20250729
  Receipt Date: 20250729
  Transmission Date: 20251021
  Serious: Yes (Hospitalization)
  Sender: MYLAN
  Company Number: US-MYLANLABS-2025M1061422

PATIENT
  Age: 74 Year
  Sex: Male

DRUGS (8)
  1. METHOTREXATE [Suspect]
     Active Substance: METHOTREXATE
     Indication: Rheumatoid arthritis
  2. METHOTREXATE [Suspect]
     Active Substance: METHOTREXATE
     Route: 065
  3. METHOTREXATE [Suspect]
     Active Substance: METHOTREXATE
     Route: 065
  4. METHOTREXATE [Suspect]
     Active Substance: METHOTREXATE
  5. ETANERCEPT [Suspect]
     Active Substance: ETANERCEPT
     Indication: Rheumatoid arthritis
  6. ETANERCEPT [Suspect]
     Active Substance: ETANERCEPT
     Route: 065
  7. ETANERCEPT [Suspect]
     Active Substance: ETANERCEPT
     Route: 065
  8. ETANERCEPT [Suspect]
     Active Substance: ETANERCEPT

REACTIONS (2)
  - Pulmonary mass [Unknown]
  - Pneumothorax [Unknown]
